FAERS Safety Report 7403709-0 (Version None)
Quarter: 2011Q2

REPORT INFORMATION
  Report Type: 
  Country: None (occurrence: None)
  Receive Date: 20110408
  Receipt Date: 20110325
  Transmission Date: 20111010
  Serious: Yes (Death, Hospitalization, Other)
  Sender: FDA-Public Use
  Company Number: US-CELGENEUS-163-21880-11013059

PATIENT
  Sex: Male
  Weight: 68.1 kg

DRUGS (12)
  1. MORPHINE [Concomitant]
     Dosage: 15 MILLIGRAM
     Route: 065
     Dates: start: 20101227
  2. REVLIMID [Suspect]
     Indication: MULTIPLE MYELOMA
     Dosage: 5 MILLIGRAM
     Route: 048
     Dates: start: 20071113, end: 20080301
  3. DEXAMETHASONE [Concomitant]
     Dosage: 40 MILLIGRAM
     Route: 065
     Dates: start: 20101213
  4. SUPER-B COMPLEX [Concomitant]
     Dosage: 1
     Route: 065
     Dates: start: 20101213
  5. ALLOPURINOL [Concomitant]
     Indication: GOUT
     Dosage: 100 MILLIGRAM
     Route: 065
     Dates: start: 20101201
  6. REVLIMID [Suspect]
     Route: 048
     Dates: start: 20101201, end: 20110217
  7. WARFARIN SODIUM [Concomitant]
     Dosage: 5 MILLIGRAM
     Route: 065
  8. ATENOLOL [Concomitant]
     Dosage: 50 MILLIGRAM
     Route: 065
     Dates: start: 20101213
  9. MULTI-VITAMINS [Concomitant]
     Dosage: 1
     Route: 065
     Dates: start: 20101213
  10. REVLIMID [Suspect]
     Dosage: 5 MILLIGRAM
     Route: 048
     Dates: end: 20091222
  11. FUROSEMIDE [Concomitant]
     Dosage: 20 MILLIGRAM
     Route: 065
     Dates: start: 20110101
  12. HYDROCODONE [Concomitant]
     Route: 065
     Dates: start: 20101213

REACTIONS (6)
  - VIRAL INFECTION [None]
  - DERMATITIS BULLOUS [None]
  - MULTIPLE MYELOMA [None]
  - RENAL FAILURE [None]
  - VOMITING [None]
  - DEATH [None]
